FAERS Safety Report 9507423 (Version 1)
Quarter: 2013Q1

REPORT INFORMATION
  Report Type: Spontaneous
  Country: US (occurrence: None)
  Receive Date: 20130305
  Receipt Date: 20130305
  Transmission Date: 20140127
  Serious: Yes (Other)
  Sender: FDA-Public Use
  Company Number: 163-21880-12123256

PATIENT
  Age: 86 Year
  Sex: Female

DRUGS (2)
  1. REVLIMID (LENALIDOMIDE) (CAPSULES) [Suspect]
     Indication: PLASMA CELL MYELOMA
     Dosage: 5 MG, 21 IN 28 D, PO
     Dates: start: 20100623
  2. ZOMETA (ZOLEDRONIC ACID) [Concomitant]

REACTIONS (2)
  - Headache [None]
  - Increased tendency to bruise [None]
